FAERS Safety Report 4627989-X (Version None)
Quarter: 2005Q2

REPORT INFORMATION
  Report Type: 
  Country: None (occurrence: None)
  Receive Date: 20050401
  Receipt Date: 20050316
  Transmission Date: 20051028
  Serious: Yes (Death)
  Sender: FDA-Public Use
  Company Number: 2005S1001288

PATIENT
  Age: 61 Year
  Sex: Male
  Weight: 88.905 kg

DRUGS (11)
  1. CLOZAPINE [Suspect]
     Indication: SCHIZOPHRENIA
     Dosage: 50 MG; HS; PO
     Route: 048
     Dates: start: 20000816, end: 20050301
  2. CLOZAPINE [Suspect]
     Dosage: 400 MG; HS; PO
     Route: 048
     Dates: start: 20000816
  3. ESCITALOPRAM [Concomitant]
  4. LANSOPRAZOLE [Concomitant]
  5. PSYLLIUM HYDROPHILIC [Concomitant]
  6. MUCILLOID [Concomitant]
  7. VALPROATE SODIUM [Concomitant]
  8. BENZATROPINE MESILATE [Concomitant]
  9. ASCORBIC ACID/TOCOPHEROL/RETINOL [Concomitant]
  10. MACROGOL [Concomitant]
  11. ZIPRASIDONE HYDROCHLORIDE [Concomitant]

REACTIONS (2)
  - CHEST X-RAY ABNORMAL [None]
  - DYSPNOEA [None]
